FAERS Safety Report 7791541-8 (Version None)
Quarter: 2011Q3

REPORT INFORMATION
  Report Type: 
  Country: None (occurrence: None)
  Receive Date: 20110930
  Receipt Date: 20110930
  Transmission Date: 20111222
  Serious: Yes (Other)
  Sender: FDA-Public Use
  Company Number: None

PATIENT
  Sex: Female
  Weight: 86.1834 kg

DRUGS (2)
  1. VAGIFEM [Suspect]
     Indication: SURGERY
     Dosage: 10MCG 1-2X WK VAGINA
     Route: 067
     Dates: start: 20110805, end: 20110910
  2. VAGIFEM [Suspect]
     Indication: INCONTINENCE
     Dosage: 10MCG 1-2X WK VAGINA
     Route: 067
     Dates: start: 20110805, end: 20110910

REACTIONS (4)
  - DISCOMFORT [None]
  - PAIN [None]
  - HEADACHE [None]
  - HYPERAESTHESIA [None]
